FAERS Safety Report 21917126 (Version 3)
Quarter: 2023Q1

REPORT INFORMATION
  Report Type: Spontaneous
  Country: JP (occurrence: JP)
  Receive Date: 20230126
  Receipt Date: 20230214
  Transmission Date: 20230418
  Serious: Yes (Death, Other)
  Sender: FDA-Public Use
  Company Number: JP-ABBVIE-4144872

PATIENT
  Age: 74 Year
  Sex: Male

DRUGS (3)
  1. VENCLEXTA [Suspect]
     Active Substance: VENETOCLAX
     Indication: Acute myeloid leukaemia
     Dosage: LAST ADMINISTRATION DATE: 2022
     Route: 048
     Dates: start: 20220812
  2. VENCLEXTA [Suspect]
     Active Substance: VENETOCLAX
     Indication: Acute myeloid leukaemia
     Dosage: FIRST ADMINISTRATION DATE: 2022
     Route: 048
  3. VIDAZA [Suspect]
     Active Substance: AZACITIDINE
     Indication: Acute myeloid leukaemia
     Route: 058

REACTIONS (5)
  - Pneumonia [Fatal]
  - Acute myeloid leukaemia [Unknown]
  - Drug ineffective [Unknown]
  - General physical health deterioration [Unknown]
  - Discomfort [Unknown]

NARRATIVE: CASE EVENT DATE: 20230101
